FAERS Safety Report 6576699-0 (Version None)
Quarter: 2010Q1

REPORT INFORMATION
  Report Type: 
  Country: None (occurrence: None)
  Receive Date: 20100210
  Receipt Date: 20100202
  Transmission Date: 20100710
  Serious: Yes (Other)
  Sender: FDA-Public Use
  Company Number: FR-ROCHE-674055

PATIENT
  Sex: Male

DRUGS (4)
  1. TAMIFLU [Suspect]
     Route: 048
     Dates: start: 20091116, end: 20091121
  2. OMEPRAZOLE [Concomitant]
  3. ALLOPURINOL [Concomitant]
  4. IBUPROFEN [Concomitant]
     Indication: TENDONITIS

REACTIONS (5)
  - ARTHROPATHY [None]
  - HAEMARTHROSIS [None]
  - INFLAMMATION [None]
  - JOINT EFFUSION [None]
  - PYREXIA [None]
